FAERS Safety Report 5214057-1 (Version None)
Quarter: 2007Q1

REPORT INFORMATION
  Report Type: 
  Country: None (occurrence: None)
  Receive Date: 20070122
  Receipt Date: 20061027
  Transmission Date: 20070707
  Serious: Yes (Hospitalization)
  Sender: FDA-Public Use
  Company Number: FR-AVENTIS-200613789FR

PATIENT
  Age: 62 Year
  Sex: Female

DRUGS (11)
  1. TRAMADOL HCL [Suspect]
     Indication: PAIN
     Route: 048
     Dates: start: 20060919, end: 20060928
  2. HYDROCORTISONE [Suspect]
     Route: 048
  3. LEVOTHYROXINE SODIUM [Suspect]
     Route: 048
  4. CIFLOX                             /00697201/ [Suspect]
     Indication: LIVER ABSCESS
     Route: 048
     Dates: start: 20060911, end: 20060918
  5. CIFLOX                             /00697201/ [Suspect]
     Route: 048
     Dates: start: 20060919, end: 20060926
  6. NEXIUM [Suspect]
     Route: 048
     Dates: start: 20060911, end: 20060927
  7. PREVISCAN                          /00789001/ [Suspect]
     Route: 048
     Dates: start: 20060918, end: 20060928
  8. COVERSYL                           /00790701/ [Concomitant]
     Indication: ESSENTIAL HYPERTENSION
     Route: 048
  9. MOVICOL                            /01053601/ [Concomitant]
     Indication: CONSTIPATION
     Route: 048
  10. SPASFON                            /00934601/ [Concomitant]
     Route: 048
  11. HEPARINE                           /00027701/ [Concomitant]
     Indication: PROPHYLAXIS
     Dates: start: 20060910, end: 20060923

REACTIONS (1)
  - HEPATITIS CHOLESTATIC [None]
